FAERS Safety Report 5760238-8 (Version None)
Quarter: 2008Q2

REPORT INFORMATION
  Report Type: 
  Country: None (occurrence: None)
  Receive Date: 20080602
  Receipt Date: 20080519
  Transmission Date: 20081010
  Serious: Yes (Death, Hospitalization, Other)
  Sender: FDA-Public Use
  Company Number: WAES 0805USA04665

PATIENT
  Age: 71 Year
  Sex: Female
  Weight: 52.1637 kg

DRUGS (12)
  1. MEVACOR [Suspect]
     Dosage: 80 MG/DAILY/PO
     Route: 048
     Dates: start: 19960101, end: 20070906
  2. LASOFOXIFENE UNK [Suspect]
     Indication: OSTEOPOROSIS
     Dosage: 0.5 MG/DAILY/PO
     Route: 048
     Dates: start: 20021001, end: 20070717
  3. COZAAR [Concomitant]
  4. OS-CAL [Concomitant]
  5. ALENDRONATE SODIUM [Concomitant]
  6. AMOXICILLIN [Concomitant]
  7. CYANOCOBALAMIN [Concomitant]
  8. FERROUS SULFATE TAB [Concomitant]
  9. INSULIN HUMAN, ISOPHANE [Concomitant]
  10. OMEPRAZOLE [Concomitant]
  11. TOLTERODINE TARTRATE [Concomitant]
  12. VITAMINS [Concomitant]

REACTIONS (13)
  - ANAEMIA OF CHRONIC DISEASE [None]
  - AORTIC VALVE REPLACEMENT [None]
  - BLADDER NEOPLASM [None]
  - CEREBRAL INFARCTION [None]
  - CORONARY ARTERY DISEASE [None]
  - DISEASE RECURRENCE [None]
  - MYOCARDIAL INFARCTION [None]
  - OSTEOARTHRITIS [None]
  - PANCREATIC NEOPLASM [None]
  - RHABDOMYOLYSIS [None]
  - URINARY TRACT INFECTION FUNGAL [None]
  - UROSEPSIS [None]
  - UTERINE PROLAPSE [None]
